FAERS Safety Report 12521419 (Version 1)
Quarter: 2016Q3

REPORT INFORMATION
  Report Type: Not Available
  Country: US (occurrence: US)
  Receive Date: 20160701
  Receipt Date: 20160701
  Transmission Date: 20161109
  Serious: Yes (Hospitalization)
  Sender: FDA-Public Use
  Company Number: US-ECOLAB-2016-US-004140

PATIENT
  Age: 31 Year
  Sex: Male

DRUGS (1)
  1. QUIK-CARE [Suspect]
     Active Substance: ALCOHOL
     Dosage: 200 ML
     Route: 048
     Dates: start: 20160618, end: 20160618

REACTIONS (4)
  - Intentional product misuse [Unknown]
  - Poisoning [None]
  - Lethargy [Recovered/Resolved]
  - Ataxia [Recovered/Resolved]

NARRATIVE: CASE EVENT DATE: 20160618
